FAERS Safety Report 23135014 (Version 1)
Quarter: 2023Q4

REPORT INFORMATION
  Report Type: Spontaneous
  Country: ES (occurrence: ES)
  Receive Date: 20231101
  Receipt Date: 20231101
  Transmission Date: 20240110
  Serious: Yes (Other)
  Sender: FDA-Public Use
  Company Number: ES-BEH-2023164921

PATIENT
  Age: 51 Year
  Sex: Female

DRUGS (1)
  1. HAEMATE P [Suspect]
     Active Substance: ANTIHEMOPHILIC FACTOR HUMAN
     Indication: Von Willebrand^s disease
     Dosage: UNK, PRN
     Route: 065

REACTIONS (2)
  - Subdural haematoma [Unknown]
  - Craniocerebral injury [Unknown]
